FAERS Safety Report 5682126-8 (Version None)
Quarter: 2008Q1

REPORT INFORMATION
  Report Type: 
  Country: None (occurrence: None)
  Receive Date: 20080327
  Receipt Date: 20070419
  Transmission Date: 20080703
  Serious: Yes (Other)
  Sender: FDA-Public Use
  Company Number: US-BAYER-US-2007-013829

PATIENT
  Age: 42 Year
  Sex: Female
  Weight: 52 kg

DRUGS (1)
  1. MIRENA [Suspect]
     Indication: VAGINAL HAEMORRHAGE
     Route: 015
     Dates: start: 20041101

REACTIONS (14)
  - BREAST TENDERNESS [None]
  - CHEST PAIN [None]
  - DEPRESSION [None]
  - DYSPAREUNIA [None]
  - INSOMNIA [None]
  - IUCD COMPLICATION [None]
  - LIBIDO DECREASED [None]
  - NAUSEA [None]
  - PANIC ATTACK [None]
  - PILONIDAL CYST [None]
  - PROCEDURAL PAIN [None]
  - VAGINAL HAEMORRHAGE [None]
  - VAGINITIS BACTERIAL [None]
  - VULVOVAGINAL MYCOTIC INFECTION [None]
